FAERS Safety Report 6148445-6 (Version None)
Quarter: 2009Q2

REPORT INFORMATION
  Report Type: 
  Country: None (occurrence: None)
  Receive Date: 20090408
  Receipt Date: 20090126
  Transmission Date: 20091009
  Serious: Yes (Other)
  Sender: FDA-Public Use
  Company Number: US-PFIZER INC-2007088187

PATIENT
  Sex: Female
  Weight: 113.63 kg

DRUGS (5)
  1. CHANTIX [Suspect]
     Indication: SMOKING CESSATION THERAPY
     Dosage: 1 MG, 2X/DAY
     Route: 048
     Dates: start: 20070918, end: 20071017
  2. OXYCONTIN [Concomitant]
  3. PERCOCET [Concomitant]
  4. ALBUTEROL [Concomitant]
  5. CITALOPRAM HYDROBROMIDE [Concomitant]

REACTIONS (6)
  - ARTHRALGIA [None]
  - DRUG INTOLERANCE [None]
  - FLUID RETENTION [None]
  - JOINT SWELLING [None]
  - OEDEMA PERIPHERAL [None]
  - WEIGHT INCREASED [None]
